FAERS Safety Report 7415999-9 (Version None)
Quarter: 2011Q2

REPORT INFORMATION
  Report Type: 
  Country: None (occurrence: None)
  Receive Date: 20110414
  Receipt Date: 20110408
  Transmission Date: 20111010
  Serious: Yes (Other)
  Sender: FDA-Public Use
  Company Number: US-ROXANE LABORATORIES, INC.-2011-RO-00484RO

PATIENT

DRUGS (5)
  1. FENTANYL [Suspect]
     Indication: PAIN
     Route: 062
  2. LIDOCAINE [Suspect]
     Indication: PAIN
     Route: 062
  3. MORPHINE [Suspect]
     Indication: PAIN
  4. DULOXETINE [Suspect]
     Indication: PAIN
  5. GABAPENTIN [Suspect]
     Indication: PAIN

REACTIONS (2)
  - CONSTIPATION [None]
  - SOMNOLENCE [None]
